FAERS Safety Report 8260839-1 (Version None)
Quarter: 2012Q2

REPORT INFORMATION
  Report Type: 
  Country: None (occurrence: None)
  Receive Date: 20120402
  Receipt Date: 20120319
  Transmission Date: 20120825
  Serious: Yes (Death, Hospitalization, Other)
  Sender: FDA-Public Use
  Company Number: 2012MA003648

PATIENT
  Age: 74 Year
  Sex: Female
  Weight: 102.5129 kg

DRUGS (25)
  1. COLACE [Concomitant]
  2. SPIRONOLACTONE [Concomitant]
  3. XANAX [Concomitant]
  4. CORICIDIN D SRT [Concomitant]
  5. FUROSEMIDE [Concomitant]
  6. POTASSIUM [Concomitant]
  7. TYLENOL [Concomitant]
  8. ALPRAZOLAM [Concomitant]
  9. CHLORIDE [Concomitant]
  10. FOSAMAX [Concomitant]
  11. HEPARIN [Concomitant]
  12. LORTAB [Concomitant]
  13. METOPROLOL TARTRATE [Concomitant]
  14. ASPIRIN [Concomitant]
  15. PROPRANOLOL [Concomitant]
  16. DIGOXIN [Suspect]
     Indication: PRODUCT USED FOR UNKNOWN INDICATION
     Dosage: 0.125 MG;QD;PO
     Route: 048
     Dates: start: 20040409, end: 20070820
  17. COUMADIN [Concomitant]
  18. PEPCID [Concomitant]
  19. REMERON [Concomitant]
  20. LASIX [Concomitant]
  21. ASCORBIC ACID [Concomitant]
  22. DARVOCET [Concomitant]
  23. METHADONE HCL [Concomitant]
  24. NEURONTIN [Concomitant]
  25. PREDNISONE TAB [Concomitant]

REACTIONS (21)
  - ECONOMIC PROBLEM [None]
  - POLYMYALGIA RHEUMATICA [None]
  - DIZZINESS [None]
  - TRICUSPID VALVE INCOMPETENCE [None]
  - ANGINA UNSTABLE [None]
  - CEREBROVASCULAR ACCIDENT [None]
  - ASTHENIA [None]
  - FACET JOINT SYNDROME [None]
  - INJURY [None]
  - ARTHRALGIA [None]
  - CARDIOMEGALY [None]
  - PULMONARY VALVE INCOMPETENCE [None]
  - TRANSIENT ISCHAEMIC ATTACK [None]
  - CATARACT [None]
  - GASTROOESOPHAGEAL REFLUX DISEASE [None]
  - DYSARTHRIA [None]
  - TOXICITY TO VARIOUS AGENTS [None]
  - ANXIETY [None]
  - RENAL CYST [None]
  - THROMBOCYTOPENIA [None]
  - MENTAL STATUS CHANGES [None]
